FAERS Safety Report 12374265 (Version 1)
Quarter: 2016Q2

REPORT INFORMATION
  Report Type: Spontaneous
  Country: US (occurrence: None)
  Receive Date: 20160516
  Receipt Date: 20160516
  Transmission Date: 20160815
  Serious: Yes (Other)
  Sender: FDA-Public Use
  Company Number: None

PATIENT
  Age: 52 Year
  Sex: Female
  Weight: 95.26 kg

DRUGS (6)
  1. CALCIUM [Concomitant]
     Active Substance: CALCIUM
  2. VITAMIN E [Concomitant]
     Active Substance: .ALPHA.-TOCOPHEROL
  3. CIPRO [Suspect]
     Active Substance: CIPROFLOXACIN HYDROCHLORIDE
     Indication: URINARY TRACT INFECTION
     Dates: start: 20160504, end: 20160510
  4. VITAMIN D [Concomitant]
     Active Substance: CHOLECALCIFEROL
  5. ACIDOPHILUS [Concomitant]
     Active Substance: LACTOBACILLUS ACIDOPHILUS
  6. FISH OIL [Concomitant]
     Active Substance: FISH OIL

REACTIONS (5)
  - Arthralgia [None]
  - Back pain [None]
  - Neck pain [None]
  - Myalgia [None]
  - Pain in extremity [None]

NARRATIVE: CASE EVENT DATE: 20160507
